FAERS Safety Report 6894049-7 (Version None)
Quarter: 2010Q3

REPORT INFORMATION
  Report Type: 
  Country: None (occurrence: None)
  Receive Date: 20100802
  Receipt Date: 20100720
  Transmission Date: 20110219
  Serious: No
  Sender: FDA-Public Use
  Company Number: US-JNJFOC-20100706900

PATIENT
  Sex: Female
  Weight: 68.04 kg

DRUGS (5)
  1. SANDOZ FENTANYL TRANSDERMAL SYSTEM [Suspect]
     Indication: THORACIC OUTLET SYNDROME
     Route: 062
  2. SANDOZ FENTANYL TRANSDERMAL SYSTEM [Suspect]
     Dosage: NDC# 0781-7243-55
     Route: 062
  3. ASPIRIN [Concomitant]
     Indication: PROPHYLAXIS
     Route: 048
  4. CALCIUM VITAMINE D3 [Concomitant]
     Indication: PROPHYLAXIS
     Route: 048
  5. FISH OIL [Concomitant]
     Indication: PROPHYLAXIS
     Route: 048

REACTIONS (4)
  - BLOOD CHOLESTEROL ABNORMAL [None]
  - HYPERHIDROSIS [None]
  - PAIN [None]
  - WRONG TECHNIQUE IN DRUG USAGE PROCESS [None]
